FAERS Safety Report 15202386 (Version 1)
Quarter: 2018Q3

REPORT INFORMATION
  Report Type: Spontaneous
  Country: BR (occurrence: BR)
  Receive Date: 20180726
  Receipt Date: 20180726
  Transmission Date: 20181010
  Serious: Yes (Other)
  Sender: FDA-Public Use
  Company Number: BR-BAYER-2018-094537

PATIENT
  Age: 30 Year
  Sex: Female

DRUGS (1)
  1. MIRENA [Suspect]
     Active Substance: LEVONORGESTREL
     Indication: CONTRACEPTION
     Dosage: 20 MCG/24HR, CONT
     Route: 015
     Dates: start: 2016

REACTIONS (15)
  - Haemorrhage [None]
  - Device dislocation [None]
  - Abdominal pain [Not Recovered/Not Resolved]
  - Complication of device insertion [Recovered/Resolved]
  - Hepatic steatosis [Not Recovered/Not Resolved]
  - Haemorrhagic ovarian cyst [Not Recovered/Not Resolved]
  - Abdominal pain [Not Recovered/Not Resolved]
  - Blood pressure decreased [Recovered/Resolved]
  - Anaemia [Not Recovered/Not Resolved]
  - Menorrhagia [Not Recovered/Not Resolved]
  - Dyspareunia [Not Recovered/Not Resolved]
  - Ovarian cyst ruptured [Not Recovered/Not Resolved]
  - Genital haemorrhage [Not Recovered/Not Resolved]
  - Device difficult to use [None]
  - Abdominal pain lower [None]

NARRATIVE: CASE EVENT DATE: 2016
